FAERS Safety Report 9231161 (Version 1)
Quarter: 2013Q2

REPORT INFORMATION
  Report Type: Report from Study
  Country: BR (occurrence: BR)
  Receive Date: 20130415
  Receipt Date: 20130415
  Transmission Date: 20140414
  Serious: Yes (Other)
  Sender: FDA-Public Use
  Company Number: BR-BAYER-2013-046018

PATIENT
  Sex: Female

DRUGS (5)
  1. BETAFERON [Suspect]
     Indication: MULTIPLE SCLEROSIS
     Dosage: 1 ML, QOD
     Route: 058
     Dates: start: 2004
  2. SIMVASTATIN [Concomitant]
     Indication: BLOOD CHOLESTEROL INCREASED
     Dosage: 1 DF, QD (NIGHT)
     Route: 048
  3. AMLODIPINE [Concomitant]
     Indication: HYPERTENSION
     Dosage: 1 DF, OM
     Route: 048
  4. LOSARTAN [Concomitant]
     Indication: HYPERTENSION
     Dosage: 1 DF, OM
     Route: 048
  5. VITAMIN D [Concomitant]
     Indication: VITAMIN D DECREASED
     Dosage: GTT, PRN
     Route: 048
     Dates: start: 2012

REACTIONS (10)
  - Multiple sclerosis [Not Recovered/Not Resolved]
  - Pain in extremity [Not Recovered/Not Resolved]
  - Muscular weakness [Not Recovered/Not Resolved]
  - Gait disturbance [Not Recovered/Not Resolved]
  - Multiple sclerosis relapse [Recovered/Resolved]
  - Pain in extremity [Recovered/Resolved]
  - Abasia [Recovered/Resolved]
  - Urinary incontinence [Not Recovered/Not Resolved]
  - Gastritis [None]
  - Abdominal pain upper [None]
